FAERS Safety Report 4916611-0 (Version None)
Quarter: 2006Q1

REPORT INFORMATION
  Report Type: 
  Country: None (occurrence: None)
  Receive Date: 20060220
  Receipt Date: 20060213
  Transmission Date: 20060701
  Serious: Yes (Other)
  Sender: FDA-Public Use
  Company Number: DE-GLAXOSMITHKLINE-B0410500A

PATIENT
  Age: 43 Year
  Sex: Male
  Weight: 81 kg

DRUGS (3)
  1. COMBIVIR [Suspect]
     Indication: HIV INFECTION
     Dosage: 450MG TWICE PER DAY
     Route: 065
     Dates: start: 20000301
  2. KALETRA [Suspect]
     Indication: HIV INFECTION
     Dosage: 500MG PER DAY
     Route: 065
     Dates: start: 20000301, end: 20030701
  3. BEZAFIBRATE [Concomitant]
     Dosage: 400MG PER DAY

REACTIONS (10)
  - ASTHENIA [None]
  - COORDINATION ABNORMAL [None]
  - GAIT DISTURBANCE [None]
  - HYPERTONIA [None]
  - LIPODYSTROPHY ACQUIRED [None]
  - LIPOMATOSIS [None]
  - LOSS OF PROPRIOCEPTION [None]
  - MYELOPATHY [None]
  - PARAPARESIS [None]
  - URINARY RETENTION [None]
